FAERS Safety Report 14919305 (Version 4)
Quarter: 2018Q2

REPORT INFORMATION
  Report Type: Spontaneous
  Country: US (occurrence: US)
  Receive Date: 20180521
  Receipt Date: 20180607
  Transmission Date: 20180711
  Serious: No
  Sender: FDA-Public Use
  Company Number: US-UNITED THERAPEUTICS-UNT-2018-006944

PATIENT
  Age: 77 Year
  Sex: Female
  Weight: 64.4 kg

DRUGS (3)
  1. TYVASO [Suspect]
     Active Substance: TREPROSTINIL
     Indication: PULMONARY ARTERIAL HYPERTENSION
     Dosage: 18-54 MICROGRAMS, QID
     Dates: start: 20180508
  2. TYVASO [Suspect]
     Active Substance: TREPROSTINIL
     Dosage: UNK
  3. TYVASO [Suspect]
     Active Substance: TREPROSTINIL
     Dosage: 12 ?G, QID

REACTIONS (8)
  - Headache [Unknown]
  - Oxygen saturation decreased [Unknown]
  - Fatigue [Unknown]
  - Cough [Not Recovered/Not Resolved]
  - Anxiety [Unknown]
  - Heart rate increased [Unknown]
  - Dyspnoea exertional [Unknown]
  - Depression [Unknown]

NARRATIVE: CASE EVENT DATE: 201805
